FAERS Safety Report 5902723-1 (Version None)
Quarter: 2008Q3

REPORT INFORMATION
  Report Type: 
  Country: None (occurrence: None)
  Receive Date: 20080929
  Receipt Date: 20080929
  Transmission Date: 20090109
  Serious: No
  Sender: FDA-Public Use
  Company Number: None

PATIENT
  Age: 76 Year
  Sex: Female
  Weight: 57.6068 kg

DRUGS (1)
  1. ACTONEL [Suspect]
     Indication: OSTEOPOROSIS
     Dosage: 150 MG ONCE-A-MONTH
     Dates: start: 20080625

REACTIONS (5)
  - GINGIVAL PAIN [None]
  - LIP DRY [None]
  - LIP SWELLING [None]
  - ORAL DISCOMFORT [None]
  - ORAL PAIN [None]
